FAERS Safety Report 7537976-X (Version None)
Quarter: 2011Q2

REPORT INFORMATION
  Report Type: 
  Country: None (occurrence: None)
  Receive Date: 20110609
  Receipt Date: 20110531
  Transmission Date: 20111010
  Serious: Yes (Other)
  Sender: FDA-Public Use
  Company Number: US-ASTRAZENECA-2011SE33883

PATIENT
  Sex: Female

DRUGS (3)
  1. METOPROLOL SUCCINATE [Suspect]
     Route: 065
  2. TOPROL-XL [Suspect]
     Route: 048
  3. WARFARIN SODIUM [Concomitant]

REACTIONS (3)
  - LOSS OF CONSCIOUSNESS [None]
  - DIZZINESS [None]
  - CEREBROVASCULAR ACCIDENT [None]
